FAERS Safety Report 7714559-X (Version None)
Quarter: 2011Q3

REPORT INFORMATION
  Report Type: 
  Country: None (occurrence: None)
  Receive Date: 20110804
  Receipt Date: 20110610
  Transmission Date: 20111222
  Serious: No
  Sender: FDA-Public Use
  Company Number: 2011-08242

PATIENT
  Age: 60 Year
  Sex: Male

DRUGS (2)
  1. RAPAFLO [Suspect]
     Indication: BENIGN PROSTATIC HYPERPLASIA
     Dosage: 8 MG, DAILY, ORAL
     Route: 048
     Dates: start: 20110603
  2. PREDNISONE [Concomitant]

REACTIONS (5)
  - FREQUENT BOWEL MOVEMENTS [None]
  - HEADACHE [None]
  - RETROGRADE EJACULATION [None]
  - ABDOMINAL DISCOMFORT [None]
  - DYSPEPSIA [None]
